FAERS Safety Report 4909988-3 (Version None)
Quarter: 2006Q1

REPORT INFORMATION
  Report Type: 
  Country: None (occurrence: None)
  Receive Date: 20060208
  Receipt Date: 20060126
  Transmission Date: 20060701
  Serious: Yes (Other)
  Sender: FDA-Public Use
  Company Number: 2006004759

PATIENT
  Age: 40 Year
  Sex: Female
  Weight: 73.4827 kg

DRUGS (4)
  1. LYRICA [Suspect]
     Indication: PAIN
  2. NEURONTIN [Suspect]
     Indication: PAIN
     Dosage: 100 MG (100 MG, 1 IN 1 D), ORAL
     Route: 048
     Dates: start: 20051101
  3. NORTRIPTYLINE (NORTRIPTYLINE) [Concomitant]
  4. MORPHINE-SP (MORPHINE HYDROCHLORIDE) [Concomitant]

REACTIONS (7)
  - ARRHYTHMIA [None]
  - ATRIAL FLUTTER [None]
  - CHEST DISCOMFORT [None]
  - CHEST PAIN [None]
  - HEART RATE IRREGULAR [None]
  - PALPITATIONS [None]
  - STRESS [None]
